FAERS Safety Report 11261258 (Version 1)
Quarter: 2015Q3

REPORT INFORMATION
  Report Type: Spontaneous
  Country: US (occurrence: US)
  Receive Date: 20150710
  Receipt Date: 20150710
  Transmission Date: 20151125
  Serious: No
  Sender: FDA-Public Use
  Company Number: US-009507513-1507USA004042

PATIENT
  Age: 60 Year
  Sex: Female

DRUGS (1)
  1. SINGULAIR [Suspect]
     Active Substance: MONTELUKAST SODIUM
     Indication: FLUSHING
     Dosage: 10 MG, DAILY
     Route: 048

REACTIONS (1)
  - Drug ineffective [Unknown]
